FAERS Safety Report 8078145-7 (Version None)
Quarter: 2012Q1

REPORT INFORMATION
  Report Type: 
  Country: None (occurrence: None)
  Receive Date: 20120127
  Receipt Date: 20110117
  Transmission Date: 20120608
  Serious: Yes (Hospitalization, Other)
  Sender: FDA-Public Use
  Company Number: US-ABBOTT-10P-163-0688334-00

PATIENT
  Age: 61 Year
  Sex: Female

DRUGS (11)
  1. LASIX [Concomitant]
     Indication: SWELLING
     Dosage: 40 MG DAILY
  2. FLUOCINONIDE [Concomitant]
     Indication: PSORIASIS
  3. VITAMIN D [Concomitant]
     Indication: PRODUCT USED FOR UNKNOWN INDICATION
  4. HUMIRA [Suspect]
     Indication: RHEUMATOID ARTHRITIS
     Dates: start: 20101119, end: 20101201
  5. PREDNISONE [Concomitant]
     Indication: PRODUCT USED FOR UNKNOWN INDICATION
     Dosage: 5 MG DAILY
  6. PERCOCET [Concomitant]
     Indication: PAIN
  7. AMBIEN [Concomitant]
     Indication: INSOMNIA
     Dosage: 5 MG AT BEDTIME
  8. FENTANYL [Concomitant]
     Indication: PRODUCT USED FOR UNKNOWN INDICATION
     Route: 062
  9. VICODIN ES [Concomitant]
     Indication: PAIN
  10. HUMIRA [Suspect]
     Dates: start: 20101221
  11. BACLOFEN [Concomitant]
     Indication: PAIN

REACTIONS (6)
  - NEPHROLITHIASIS [None]
  - NAUSEA [None]
  - VOMITING [None]
  - FATIGUE [None]
  - FEELING ABNORMAL [None]
  - MIGRAINE [None]
